FAERS Safety Report 7474600-9 (Version None)
Quarter: 2011Q2

REPORT INFORMATION
  Report Type: 
  Country: None (occurrence: None)
  Receive Date: 20110503
  Receipt Date: 20110418
  Transmission Date: 20111010
  Serious: Yes (Hospitalization)
  Sender: FDA-Public Use
  Company Number: 012066

PATIENT
  Sex: Female
  Weight: 58 kg

DRUGS (6)
  1. CIMZIA [Suspect]
     Indication: RHEUMATOID ARTHRITIS
     Dosage: (400 MG 1X/2 WEEKS SUBCUTANEOUS) ; (200 MG 1X/2 WEEKS SUBCUTANEOUS)
     Route: 058
     Dates: start: 20080220, end: 20100513
  2. CIMZIA [Suspect]
     Indication: RHEUMATOID ARTHRITIS
     Dosage: (400 MG 1X/2 WEEKS SUBCUTANEOUS) ; (200 MG 1X/2 WEEKS SUBCUTANEOUS)
     Route: 058
     Dates: start: 20051214, end: 20080206
  3. METHOTREXATE [Concomitant]
  4. DICLOFENAC SODIUM [Concomitant]
  5. FOLIC ACID [Concomitant]
  6. ENALAPRIL MALEATE [Concomitant]

REACTIONS (34)
  - CHOLELITHIASIS [None]
  - ENTEROCOCCUS TEST POSITIVE [None]
  - GOITRE [None]
  - CANDIDA TEST POSITIVE [None]
  - HYDROMETRA [None]
  - OVARIAN NEOPLASM [None]
  - LEFT VENTRICULAR HYPERTROPHY [None]
  - PLATELET COUNT INCREASED [None]
  - TRACHEOBRONCHIAL DYSKINESIA [None]
  - OVARIAN MASS [None]
  - LYMPHOPROLIFERATIVE DISORDER [None]
  - ENDOMETRIAL HYPERPLASIA [None]
  - BRONCHITIS [None]
  - PHARYNGITIS [None]
  - PANCREATITIS CHRONIC [None]
  - CONDITION AGGRAVATED [None]
  - PERITONSILLAR ABSCESS [None]
  - OSTEODYSTROPHY [None]
  - VENTRICULAR DYSFUNCTION [None]
  - WEIGHT DECREASED [None]
  - RED BLOOD CELL COUNT DECREASED [None]
  - ENTEROBACTER TEST POSITIVE [None]
  - THYROID NEOPLASM [None]
  - ENDOMETRITIS [None]
  - ARTERIOSCLEROSIS CORONARY ARTERY [None]
  - UPPER RESPIRATORY TRACT INFECTION [None]
  - DISSEMINATED TUBERCULOSIS [None]
  - PULMONARY FIBROSIS [None]
  - RHEUMATOID ARTHRITIS [None]
  - HAEMOGLOBIN DECREASED [None]
  - MONOCYTE PERCENTAGE DECREASED [None]
  - BLOOD LACTATE DEHYDROGENASE INCREASED [None]
  - CHRONIC TONSILLITIS [None]
  - STAPHYLOCOCCUS TEST POSITIVE [None]
